FAERS Safety Report 9844772 (Version 1)
Quarter: 2014Q1

REPORT INFORMATION
  Report Type: Spontaneous
  Country: US (occurrence: None)
  Receive Date: 20140123
  Receipt Date: 20140123
  Transmission Date: 20141002
  Serious: Yes (Other)
  Sender: FDA-Public Use
  Company Number: None

PATIENT
  Age: 19 Year
  Sex: Female

DRUGS (1)
  1. VYVANSE [Suspect]

REACTIONS (5)
  - Anxiety [None]
  - Activities of daily living impaired [None]
  - Fatigue [None]
  - Depression [None]
  - Hallucination, auditory [None]
